FAERS Safety Report 4502181-8 (Version None)
Quarter: 2004Q4

REPORT INFORMATION
  Report Type: 
  Country: None (occurrence: None)
  Receive Date: 20041116
  Receipt Date: 20041105
  Transmission Date: 20050328
  Serious: Yes (Hospitalization)
  Sender: FDA-Public Use
  Company Number: US-ROCHE-385586

PATIENT

DRUGS (3)
  1. MYCOPHENOLATE MOFETIL [Suspect]
     Route: 048
  2. THYMOGLOBULIN [Suspect]
     Route: 065
  3. PREDNISONE [Suspect]
     Route: 065

REACTIONS (2)
  - POLYOMAVIRUS INTERSTITIAL NEPHRITIS [None]
  - RENAL LYMPHOCELE [None]
